FAERS Safety Report 7047307-X (Version None)
Quarter: 2010Q4

REPORT INFORMATION
  Report Type: 
  Country: None (occurrence: None)
  Receive Date: 20101015
  Receipt Date: 20101004
  Transmission Date: 20110411
  Serious: Yes (Other)
  Sender: FDA-Public Use
  Company Number: PHHY2010US67938

PATIENT
  Sex: Female

DRUGS (1)
  1. EXJADE [Suspect]
     Indication: BLOOD TEST ABNORMAL
     Dosage: 875 MG, QD
     Route: 048

REACTIONS (4)
  - ABDOMINAL DISTENSION [None]
  - ERYTHEMA [None]
  - FEELING HOT [None]
  - SWELLING FACE [None]
